FAERS Safety Report 20168799 (Version 1)
Quarter: 2021Q4

REPORT INFORMATION
  Report Type: Spontaneous
  Country: TW (occurrence: TW)
  Receive Date: 20211210
  Receipt Date: 20211210
  Transmission Date: 20220303
  Serious: Yes (Hospitalization, Other)
  Sender: FDA-Public Use
  Company Number: TW-VIWITPHARMA-2021VWTLIT00030

PATIENT
  Age: 65 Year
  Sex: Female

DRUGS (7)
  1. TOPIRAMATE [Suspect]
     Active Substance: TOPIRAMATE
     Indication: Weight decreased
  2. QUETIAPINE [Concomitant]
     Active Substance: QUETIAPINE
  3. LITHIUM CARBONATE [Concomitant]
     Active Substance: LITHIUM CARBONATE
  4. LORAZEPAM [Concomitant]
     Active Substance: LORAZEPAM
  5. FLURAZEPAM [Concomitant]
     Active Substance: FLURAZEPAM HYDROCHLORIDE
  6. GLIMEPIRIDE [Concomitant]
     Active Substance: GLIMEPIRIDE
     Indication: Type 2 diabetes mellitus
  7. BETHANECHOL [Interacting]
     Active Substance: BETHANECHOL
     Indication: Urinary retention

REACTIONS (3)
  - Urinary retention [Recovered/Resolved]
  - Bladder dysfunction [Recovered/Resolved]
  - Off label use [Unknown]
